FAERS Safety Report 5047285-9 (Version None)
Quarter: 2006Q3

REPORT INFORMATION
  Report Type: 
  Country: None (occurrence: None)
  Receive Date: 20060711
  Receipt Date: 20060629
  Transmission Date: 20061208
  Serious: Yes (Other)
  Sender: FDA-Public Use
  Company Number: DE-JNJFOC-20030701842

PATIENT
  Age: 57 Year
  Sex: Female

DRUGS (4)
  1. REMICADE [Suspect]
     Route: 042
  2. REMICADE [Suspect]
     Indication: SPONDYLOARTHROPATHY
     Route: 042
  3. CYCLOPHOSPHAMIDE [Suspect]
     Indication: RHEUMATOID ARTHRITIS
  4. AZATHIOPRINE [Suspect]
     Indication: RHEUMATOID ARTHRITIS

REACTIONS (8)
  - CD4 LYMPHOCYTES DECREASED [None]
  - CD4/CD8 RATIO DECREASED [None]
  - CYTOMEGALOVIRUS CHORIORETINITIS [None]
  - GAMMA-GLUTAMYLTRANSFERASE INCREASED [None]
  - HAEMOGLOBIN DECREASED [None]
  - LYMPHOPENIA [None]
  - RETINAL HAEMORRHAGE [None]
  - VITREOUS OPACITIES [None]
